FAERS Safety Report 14481336 (Version 2)
Quarter: 2018Q1

REPORT INFORMATION
  Report Type: Report from Study
  Country: BR (occurrence: BR)
  Receive Date: 20180202
  Receipt Date: 20180221
  Transmission Date: 20180509
  Serious: Yes (Hospitalization, Other)
  Sender: FDA-Public Use
  Company Number: PHHY2018BR015658

PATIENT
  Age: 58 Year
  Sex: Female
  Weight: 100 kg

DRUGS (7)
  1. DIOVAN [Suspect]
     Active Substance: VALSARTAN
     Indication: HYPERTENSION
     Dosage: 160 MG, QD
     Route: 048
     Dates: end: 20171122
  2. DIOVAN AMLO FIX [Suspect]
     Active Substance: AMLODIPINE\VALSARTAN
     Indication: HYPERTENSION
     Dosage: 1 DF (5MG AMLODIPINE/160 MG VALSARTAN), QD
     Route: 048
  3. BUP [Concomitant]
     Active Substance: BUPROPION HYDROCHLORIDE
     Indication: STENT PLACEMENT
     Dosage: 3 DF (150 MG), QD
     Route: 048
     Dates: start: 201711
  4. VENALOT [Concomitant]
     Active Substance: COUMARIN\TROXERUTIN
     Indication: JOINT SWELLING
     Dosage: 2 DF (15+90 MG), QD
     Route: 048
     Dates: start: 201801
  5. SOTALOL HYDROCHLORIDE. [Concomitant]
     Active Substance: SOTALOL HYDROCHLORIDE
     Indication: TACHYCARDIA
     Dosage: 160 MG, QD
     Route: 048
  6. ATORVASTATIN [Concomitant]
     Active Substance: ATORVASTATIN
     Indication: BLOOD CHOLESTEROL INCREASED
     Dosage: 80 MG, QD
     Route: 048
  7. ATORVASTATIN [Concomitant]
     Active Substance: ATORVASTATIN
     Indication: BLOOD TRIGLYCERIDES INCREASED

REACTIONS (6)
  - Cerebrovascular accident [Recovering/Resolving]
  - Myocardial infarction [Recovering/Resolving]
  - Thrombosis [Recovering/Resolving]
  - Sleep disorder [Recovering/Resolving]
  - Infarction [Recovering/Resolving]
  - Pain in extremity [Recovering/Resolving]

NARRATIVE: CASE EVENT DATE: 201711
